FAERS Safety Report 7710535-1 (Version None)
Quarter: 2011Q3

REPORT INFORMATION
  Report Type: 
  Country: None (occurrence: None)
  Receive Date: 20110818
  Receipt Date: 20110721
  Transmission Date: 20111222
  Serious: Yes (Hospitalization)
  Sender: FDA-Public Use
  Company Number: 18598

PATIENT
  Sex: Female
  Weight: 48.2 kg

DRUGS (10)
  1. GLASSIA [Suspect]
     Indication: ALPHA-1 ANTI-TRYPSIN DEFICIENCY
     Dosage: 3000 MG, WEEKLY, IV
     Route: 042
     Dates: start: 20110525, end: 20110715
  2. POTASSIUM GLUCONATE TAB [Concomitant]
  3. ASCORBIC ACID [Concomitant]
  4. TRAMADOL HCL [Concomitant]
  5. ALIGN [Concomitant]
  6. ALBUTEROL SULFATE AUTOHALER [Concomitant]
  7. OXYGEN [Concomitant]
  8. ATROVENT [Concomitant]
  9. PREDNISONE [Concomitant]
  10. VITAMIN E [Concomitant]

REACTIONS (6)
  - DRUG DOSE OMISSION [None]
  - PNEUMONITIS [None]
  - NERVOUSNESS [None]
  - RESPIRATORY FAILURE [None]
  - ANXIETY [None]
  - DRUG HYPERSENSITIVITY [None]
